FAERS Safety Report 9980930 (Version 4)
Quarter: 2014Q2

REPORT INFORMATION
  Report Type: Spontaneous
  Country: US (occurrence: US)
  Receive Date: 20140307
  Receipt Date: 20140424
  Transmission Date: 20141212
  Serious: No
  Sender: FDA-Public Use
  Company Number: US-PFIZER INC-2014065712

PATIENT
  Age: 69 Year
  Sex: Female
  Weight: 61.22 kg

DRUGS (8)
  1. LYRICA [Suspect]
     Indication: FIBROMYALGIA
     Dosage: 75 MG, 3X/DAY
  2. LYRICA [Suspect]
     Indication: HERPES ZOSTER
     Dosage: 100 MG, UNK
  3. LYRICA [Suspect]
     Indication: SPINAL COLUMN STENOSIS
     Dosage: 75 MG, 3X/DAY
  4. LYRICA [Suspect]
     Indication: INTERVERTEBRAL DISC DEGENERATION
  5. LYRICA [Suspect]
     Indication: SCOLIOSIS
  6. GLIPIZIDE [Concomitant]
     Indication: DIABETES MELLITUS
     Dosage: 20 MG, DAILY
  7. MORPHINE SULFATE [Concomitant]
     Indication: PAIN
     Dosage: 30 MG, 2X/DAY
  8. MORPHINE SULFATE [Concomitant]
     Indication: PAIN
     Dosage: 45 MG, UNK

REACTIONS (1)
  - Abdominal discomfort [Unknown]
